FAERS Safety Report 7727670-4 (Version None)
Quarter: 2011Q3

REPORT INFORMATION
  Report Type: 
  Country: None (occurrence: None)
  Receive Date: 20110902
  Receipt Date: 20110824
  Transmission Date: 20111222
  Serious: No
  Sender: FDA-Public Use
  Company Number: PE-ASTRAZENECA-2010SE22751

PATIENT
  Age: 22 Year
  Sex: Female

DRUGS (2)
  1. AMOXIDAL DUO [Concomitant]
     Route: 048
  2. NEXIUM [Suspect]
     Indication: GASTRITIS EROSIVE
     Route: 048

REACTIONS (2)
  - DYSPEPSIA [None]
  - VOMITING [None]
